FAERS Safety Report 24627867 (Version 1)
Quarter: 2024Q4

REPORT INFORMATION
  Report Type: Spontaneous
  Country: ES (occurrence: ES)
  Receive Date: 20241117
  Receipt Date: 20241117
  Transmission Date: 20250115
  Serious: Yes (Hospitalization, Other)
  Sender: ALEXION PHARMACEUTICALS
  Company Number: ES-ASTRAZENECA-202410GLO027246ES

PATIENT
  Age: 78 Year

DRUGS (63)
  1. DAPAGLIFLOZIN [Suspect]
     Active Substance: DAPAGLIFLOZIN
     Route: 065
  2. DAPAGLIFLOZIN [Suspect]
     Active Substance: DAPAGLIFLOZIN
  3. DAPAGLIFLOZIN [Suspect]
     Active Substance: DAPAGLIFLOZIN
     Route: 065
  4. DAPAGLIFLOZIN [Suspect]
     Active Substance: DAPAGLIFLOZIN
  5. PREDNISONE [Suspect]
     Active Substance: PREDNISONE
     Dosage: 30 MILLIGRAM, QD
  6. PREDNISONE [Suspect]
     Active Substance: PREDNISONE
     Dosage: 30 MILLIGRAM, QD
  7. PREDNISONE [Suspect]
     Active Substance: PREDNISONE
     Dosage: 30 MILLIGRAM, QD
  8. PREDNISONE [Suspect]
     Active Substance: PREDNISONE
     Dosage: 30 MILLIGRAM, QD
  9. OMEPRAZOLE [Suspect]
     Active Substance: OMEPRAZOLE
     Dosage: 20 MILLIGRAM, QD
  10. OMEPRAZOLE [Suspect]
     Active Substance: OMEPRAZOLE
     Dosage: 20 MILLIGRAM, QD
  11. OMEPRAZOLE [Suspect]
     Active Substance: OMEPRAZOLE
     Dosage: 20 MILLIGRAM, QD
  12. OMEPRAZOLE [Suspect]
     Active Substance: OMEPRAZOLE
     Dosage: 20 MILLIGRAM, QD
  13. METHYLPREDNISOLONE [Suspect]
     Active Substance: METHYLPREDNISOLONE
     Dosage: 60 MILLIGRAM
  14. METHYLPREDNISOLONE [Suspect]
     Active Substance: METHYLPREDNISOLONE
     Dosage: 60 MILLIGRAM
  15. METFORMIN [Suspect]
     Active Substance: METFORMIN HYDROCHLORIDE
     Dosage: 10000 MILLIGRAM
  16. METFORMIN [Suspect]
     Active Substance: METFORMIN HYDROCHLORIDE
     Dosage: 10000 MILLIGRAM
  17. METFORMIN [Suspect]
     Active Substance: METFORMIN HYDROCHLORIDE
     Dosage: 10000 MILLIGRAM
  18. METFORMIN [Suspect]
     Active Substance: METFORMIN HYDROCHLORIDE
     Dosage: 10000 MILLIGRAM
  19. CHLORTHALIDONE [Suspect]
     Active Substance: CHLORTHALIDONE
  20. CHLORTHALIDONE [Suspect]
     Active Substance: CHLORTHALIDONE
     Route: 065
  21. ACETAZOLAMIDE [Suspect]
     Active Substance: ACETAZOLAMIDE
  22. ACETAZOLAMIDE [Suspect]
     Active Substance: ACETAZOLAMIDE
     Route: 065
  23. SPIRONOLACTONE [Suspect]
     Active Substance: SPIRONOLACTONE
  24. SPIRONOLACTONE [Suspect]
     Active Substance: SPIRONOLACTONE
     Route: 065
  25. RIVAROXABAN [Suspect]
     Active Substance: RIVAROXABAN
     Dosage: UNK
  26. RIVAROXABAN [Suspect]
     Active Substance: RIVAROXABAN
     Dosage: UNK
     Route: 065
  27. CHLORTHALIDONE [Suspect]
     Active Substance: CHLORTHALIDONE
  28. CHLORTHALIDONE [Suspect]
     Active Substance: CHLORTHALIDONE
     Route: 065
  29. FUROSEMIDE [Suspect]
     Active Substance: FUROSEMIDE
  30. FUROSEMIDE [Suspect]
     Active Substance: FUROSEMIDE
     Route: 065
  31. SACUBITRIL [Suspect]
     Active Substance: SACUBITRIL
  32. SACUBITRIL [Suspect]
     Active Substance: SACUBITRIL
     Route: 065
  33. VALSARTAN [Suspect]
     Active Substance: VALSARTAN
     Route: 065
  34. VALSARTAN [Suspect]
     Active Substance: VALSARTAN
  35. VALSARTAN [Suspect]
     Active Substance: VALSARTAN
     Route: 065
  36. VALSARTAN [Suspect]
     Active Substance: VALSARTAN
  37. BISOPROLOL [Suspect]
     Active Substance: BISOPROLOL
  38. BISOPROLOL [Suspect]
     Active Substance: BISOPROLOL
     Route: 065
  39. INSULIN DEGLUDEC [Suspect]
     Active Substance: INSULIN DEGLUDEC
  40. INSULIN DEGLUDEC [Suspect]
     Active Substance: INSULIN DEGLUDEC
     Route: 065
  41. SEMAGLUTIDE [Suspect]
     Active Substance: SEMAGLUTIDE
     Route: 065
  42. SEMAGLUTIDE [Suspect]
     Active Substance: SEMAGLUTIDE
  43. SEMAGLUTIDE [Suspect]
     Active Substance: SEMAGLUTIDE
     Route: 065
  44. SEMAGLUTIDE [Suspect]
     Active Substance: SEMAGLUTIDE
  45. ROSUVASTATIN [Suspect]
     Active Substance: ROSUVASTATIN
     Route: 065
  46. ROSUVASTATIN [Suspect]
     Active Substance: ROSUVASTATIN
  47. ROSUVASTATIN [Suspect]
     Active Substance: ROSUVASTATIN
     Route: 065
  48. ROSUVASTATIN [Suspect]
     Active Substance: ROSUVASTATIN
  49. FEBUXOSTAT [Suspect]
     Active Substance: FEBUXOSTAT
  50. FEBUXOSTAT [Suspect]
     Active Substance: FEBUXOSTAT
     Route: 065
  51. GABAPENTIN [Suspect]
     Active Substance: GABAPENTIN
  52. GABAPENTIN [Suspect]
     Active Substance: GABAPENTIN
     Route: 065
  53. MEBEVERINE [Suspect]
     Active Substance: MEBEVERINE
  54. MEBEVERINE [Suspect]
     Active Substance: MEBEVERINE
     Route: 065
  55. TRAZODONE [Suspect]
     Active Substance: TRAZODONE HYDROCHLORIDE
  56. TRAZODONE [Suspect]
     Active Substance: TRAZODONE HYDROCHLORIDE
     Route: 065
  57. ARCAPTA NEOHALER [Suspect]
     Active Substance: INDACATEROL MALEATE
  58. ARCAPTA NEOHALER [Suspect]
     Active Substance: INDACATEROL MALEATE
     Route: 065
  59. GLYCOPYRROLATE [Suspect]
     Active Substance: GLYCOPYRROLATE
  60. GLYCOPYRROLATE [Suspect]
     Active Substance: GLYCOPYRROLATE
     Route: 065
  61. LEVOTHYROXINE [Suspect]
     Active Substance: LEVOTHYROXINE
  62. LEVOTHYROXINE [Suspect]
     Active Substance: LEVOTHYROXINE
     Route: 065
  63. DETROL [Suspect]
     Active Substance: TOLTERODINE TARTRATE

REACTIONS (3)
  - Cardiac failure [Recovered/Resolved]
  - Condition aggravated [Recovered/Resolved]
  - Renal impairment [Unknown]
